FAERS Safety Report 9885155 (Version 1)
Quarter: 2014Q1

REPORT INFORMATION
  Report Type: Spontaneous
  Country: US (occurrence: US)
  Receive Date: 20140210
  Receipt Date: 20140210
  Transmission Date: 20141002
  Serious: Yes (Other)
  Sender: FDA-Public Use
  Company Number: US-PFIZER INC-2014033749

PATIENT
  Age: 21 Year
  Sex: Male

DRUGS (2)
  1. VIAGRA [Suspect]
     Dosage: HALF A TABLET
     Route: 048
  2. VIAGRA [Suspect]
     Dosage: WHOLE TABLET
     Route: 048
     Dates: start: 20140203

REACTIONS (1)
  - Erection increased [Unknown]
